FAERS Safety Report 17696572 (Version 6)
Quarter: 2020Q3

REPORT INFORMATION
  Report Type: Spontaneous
  Country: JP (occurrence: JP)
  Receive Date: 20200423
  Receipt Date: 20200814
  Transmission Date: 20201102
  Serious: Yes (Death, Hospitalization, Other)
  Sender: FDA-Public Use
  Company Number: JP-009507513-2004JPN001215J

PATIENT
  Age: 66 Year
  Sex: Male
  Weight: 52 kg

DRUGS (11)
  1. TOARASET [Concomitant]
     Active Substance: ACETAMINOPHEN\TRAMADOL HYDROCHLORIDE
     Indication: CANCER PAIN
     Dosage: UNK, QID
     Route: 048
     Dates: start: 20200207, end: 20200219
  2. FENTANYL. [Concomitant]
     Active Substance: FENTANYL
     Indication: CANCER PAIN
     Dosage: 0.25 MILLIGRAM, QD
     Route: 051
     Dates: start: 20200302, end: 20200308
  3. LIXIANA [Concomitant]
     Active Substance: EDOXABAN TOSYLATE
     Indication: DEEP VEIN THROMBOSIS
     Dosage: 60 MILLIGRAM, QD
     Route: 048
     Dates: start: 20190614
  4. TAKECAB [Concomitant]
     Active Substance: VONOPRAZAN FUMARATE
     Indication: PROPHYLAXIS AGAINST GASTROINTESTINAL ULCER
     Dosage: 10 MILLIGRAM, QD
     Route: 048
     Dates: start: 20200226
  5. KEYTRUDA [Suspect]
     Active Substance: PEMBROLIZUMAB
     Indication: NON-SMALL CELL LUNG CANCER
     Dosage: 200 MILLIGRAM, Q3W
     Route: 041
     Dates: start: 20200227, end: 20200324
  6. PACLITAXEL ALBUMIN [Suspect]
     Active Substance: PACLITAXEL
     Indication: NON-SMALL CELL LUNG CANCER
     Dosage: 150 MILLIGRAM, EVERY 4 WEEKS
     Route: 041
     Dates: start: 20200227, end: 20200407
  7. FENTOS [Suspect]
     Active Substance: FENTANYL
     Indication: CANCER PAIN
     Dosage: 1 MILLIGRAM, QD
     Dates: start: 20200309, end: 20200413
  8. CARBOPLATIN. [Suspect]
     Active Substance: CARBOPLATIN
     Indication: NON-SMALL CELL LUNG CANCER
     Dosage: 450 MILLIGRAM, EVERY 4 WEEKS
     Route: 041
     Dates: start: 20200227, end: 20200324
  9. OXYCODONE [Concomitant]
     Active Substance: OXYCODONE
     Indication: CANCER PAIN
     Dosage: 10 MILLIGRAM, BID
     Route: 048
     Dates: start: 20200219, end: 20200221
  10. OXYCODONE [Concomitant]
     Active Substance: OXYCODONE
     Dosage: 15 MILLIGRAM, BID
     Route: 048
     Dates: start: 20200222, end: 20200301
  11. CALONAL [Suspect]
     Active Substance: ACETAMINOPHEN
     Indication: CANCER PAIN
     Dosage: 500 MILLIGRAM, QID
     Route: 048
     Dates: start: 20200221, end: 20200406

REACTIONS (3)
  - Lung disorder [Recovered/Resolved]
  - Malignant neoplasm progression [Fatal]
  - Immune-mediated hepatic disorder [Recovered/Resolved]

NARRATIVE: CASE EVENT DATE: 2020
